FAERS Safety Report 17670318 (Version 2)
Quarter: 2020Q2

REPORT INFORMATION
  Report Type: Report from Study
  Country: DE (occurrence: DE)
  Receive Date: 20200415
  Receipt Date: 20200430
  Transmission Date: 20200713
  Serious: Yes (Hospitalization)
  Sender: FDA-Public Use
  Company Number: DE-BAUSCH-BL-2020-010789

PATIENT
  Age: 61 Year
  Sex: Male
  Weight: 79 kg

DRUGS (8)
  1. ISATUXIMAB [Suspect]
     Active Substance: ISATUXIMAB
     Route: 042
     Dates: start: 20200318, end: 20200318
  2. CARFILZOMIB [Suspect]
     Active Substance: CARFILZOMIB
     Indication: PLASMA CELL MYELOMA
     Dosage: WEEKLY 72 MG/M2
     Route: 042
     Dates: start: 20200312, end: 20200312
  3. LENALIDOMIDE [Suspect]
     Active Substance: LENALIDOMIDE
     Route: 048
     Dates: start: 20200324, end: 20200324
  4. DEXAMETHASONE. [Suspect]
     Active Substance: DEXAMETHASONE
     Route: 042
     Dates: start: 20200318, end: 20200318
  5. CARFILZOMIB [Suspect]
     Active Substance: CARFILZOMIB
     Dosage: WEEKLY 72 MG/M2
     Route: 042
     Dates: start: 20200318, end: 20200318
  6. DEXAMETHASONE. [Suspect]
     Active Substance: DEXAMETHASONE
     Indication: PLASMA CELL MYELOMA
     Route: 042
     Dates: start: 20200312, end: 20200312
  7. ISATUXIMAB [Suspect]
     Active Substance: ISATUXIMAB
     Indication: PLASMA CELL MYELOMA
     Route: 042
     Dates: start: 20200312, end: 20200312
  8. LENALIDOMIDE [Suspect]
     Active Substance: LENALIDOMIDE
     Indication: PLASMA CELL MYELOMA
     Route: 048
     Dates: start: 20200312, end: 20200312

REACTIONS (1)
  - Infection [Recovered/Resolved]

NARRATIVE: CASE EVENT DATE: 20200326
